FAERS Safety Report 6923333-3 (Version None)
Quarter: 2010Q3

REPORT INFORMATION
  Report Type: 
  Country: None (occurrence: None)
  Receive Date: 20100813
  Receipt Date: 20100811
  Transmission Date: 20110219
  Serious: Yes (Death, Hospitalization)
  Sender: FDA-Public Use
  Company Number: PHHO2010CA04099

PATIENT
  Sex: Male
  Weight: 59.3 kg

DRUGS (1)
  1. AFINITOR [Suspect]
     Indication: METASTATIC RENAL CELL CARCINOMA
     Dosage: 10MG/DAY
     Route: 048
     Dates: start: 20090806, end: 20100301

REACTIONS (4)
  - HYPOKALAEMIA [None]
  - NEPHROLITHIASIS [None]
  - RENAL STONE REMOVAL [None]
  - SEPSIS [None]
